FAERS Safety Report 12438380 (Version 1)
Quarter: 2016Q2

REPORT INFORMATION
  Report Type: Spontaneous
  Country: US (occurrence: US)
  Receive Date: 20160606
  Receipt Date: 20160606
  Transmission Date: 20160815
  Serious: Yes (Hospitalization, Other)
  Sender: FDA-Public Use
  Company Number: US-DSJP-DSU-2015-128790

PATIENT
  Age: 53 Year
  Sex: Female
  Weight: 68.27 kg

DRUGS (2)
  1. BENICAR [Suspect]
     Active Substance: OLMESARTAN MEDOXOMIL
     Indication: HYPERTENSION
     Dosage: 10 ? 20MG, QD
     Dates: start: 200406
  2. BENICAR HCT [Suspect]
     Active Substance: HYDROCHLOROTHIAZIDE\OLMESARTAN MEDOXOMIL
     Indication: HYPERTENSION
     Dosage: 10 ? 20 MG DAILY
     Dates: start: 200406

REACTIONS (10)
  - Constipation [Unknown]
  - Erosive oesophagitis [Unknown]
  - Depression [Unknown]
  - Anxiety [Unknown]
  - Gastritis erosive [Unknown]
  - Hiatus hernia [Unknown]
  - Malabsorption [Not Recovered/Not Resolved]
  - Acute kidney injury [Unknown]
  - Coeliac disease [Unknown]
  - Diverticulum [Unknown]

NARRATIVE: CASE EVENT DATE: 200603
